FAERS Safety Report 23780143 (Version 1)
Quarter: 2024Q2

REPORT INFORMATION
  Report Type: Spontaneous
  Country: BR (occurrence: BR)
  Receive Date: 20240424
  Receipt Date: 20240424
  Transmission Date: 20240716
  Serious: Yes (Hospitalization, Other)
  Sender: FDA-Public Use
  Company Number: BR-TAKEDA-2024TUS037217

PATIENT
  Sex: Male
  Weight: 91 kg

DRUGS (1)
  1. ADCETRIS [Suspect]
     Active Substance: BRENTUXIMAB VEDOTIN
     Indication: Hodgkin^s disease
     Dosage: UNK UNK, Q3WEEKS
     Route: 065
     Dates: start: 202309

REACTIONS (11)
  - Dengue fever [Unknown]
  - Syncope [Unknown]
  - Hypersensitivity [Unknown]
  - Anxiety [Unknown]
  - Mouth swelling [Unknown]
  - Pruritus [Unknown]
  - Rash [Unknown]
  - Laryngeal discomfort [Unknown]
  - Social problem [Unknown]
  - Product storage error [Unknown]
  - Product dose omission issue [Unknown]
